FAERS Safety Report 9198497 (Version 4)
Quarter: 2013Q3

REPORT INFORMATION
  Report Type: Spontaneous
  Country: BR (occurrence: BR)
  Receive Date: 20130329
  Receipt Date: 20130709
  Transmission Date: 20140515
  Serious: Yes (Hospitalization, Other)
  Sender: FDA-Public Use
  Company Number: PHHY2011BR92487

PATIENT
  Sex: Male
  Weight: 76 kg

DRUGS (2)
  1. TRILEPTAL [Suspect]
     Indication: EPILEPSY
     Dosage: 1 DF(300 MG), Q12H
     Route: 048
  2. TRILEPTAL [Suspect]
     Dosage: 1 DF (600 MG), Q12H
     Route: 048

REACTIONS (9)
  - Joint dislocation [Recovered/Resolved with Sequelae]
  - Loss of consciousness [Unknown]
  - Drug dependence [Unknown]
  - Movement disorder [Recovered/Resolved]
  - Convulsion [Recovered/Resolved]
  - Stress [Unknown]
  - Sleep disorder [Unknown]
  - Asthenopia [Unknown]
  - Tachycardia [Unknown]
